FAERS Safety Report 8620504-5 (Version None)
Quarter: 2012Q3

REPORT INFORMATION
  Report Type: 
  Country: None (occurrence: None)
  Receive Date: 20120824
  Receipt Date: 20120814
  Transmission Date: 20120928
  Serious: Yes (Hospitalization, Other)
  Sender: FDA-Public Use
  Company Number: BR-BRISTOL-MYERS SQUIBB COMPANY-16864746

PATIENT
  Age: 75 Year
  Sex: Female

DRUGS (2)
  1. LASIX [Concomitant]
  2. SPRYCEL [Suspect]
     Indication: CHRONIC MYELOID LEUKAEMIA
     Route: 048
     Dates: start: 20111201

REACTIONS (3)
  - PLEURAL EFFUSION [None]
  - GASTROINTESTINAL TELANGIECTASIA [None]
  - PERICARDIAL EFFUSION [None]
